FAERS Safety Report 8077601-5 (Version None)
Quarter: 2012Q1

REPORT INFORMATION
  Report Type: 
  Country: None (occurrence: None)
  Receive Date: 20120127
  Receipt Date: 20120119
  Transmission Date: 20120608
  Serious: Yes (Death)
  Sender: FDA-Public Use
  Company Number: US-PURDUE-USA-2012-0081147

PATIENT
  Age: 1 Year
  Sex: Female

DRUGS (1)
  1. MORPHINE SULFATE [Suspect]
     Indication: ACCIDENTAL DRUG INTAKE BY CHILD

REACTIONS (3)
  - ACCIDENTAL OVERDOSE [None]
  - VICTIM OF HOMICIDE [None]
  - ACCIDENTAL DRUG INTAKE BY CHILD [None]
